FAERS Safety Report 21968888 (Version 1)
Quarter: 2023Q1

REPORT INFORMATION
  Report Type: Spontaneous
  Country: US (occurrence: None)
  Receive Date: 20230207
  Receipt Date: 20230207
  Transmission Date: 20230417
  Serious: Yes (Death)
  Sender: FDA-Public Use
  Company Number: None

PATIENT
  Age: 73 Year
  Sex: Female

DRUGS (24)
  1. OFEV [Suspect]
     Active Substance: NINTEDANIB
     Indication: Interstitial lung disease
     Dosage: FREQUENCY : TWICE A DAY;?
     Route: 048
     Dates: start: 20200910, end: 20221124
  2. TYVASO DPI [Concomitant]
     Active Substance: TREPROSTINIL
  3. PREDNISONE [Concomitant]
     Active Substance: PREDNISONE
  4. MORPHINE [Concomitant]
     Active Substance: MORPHINE
  5. SPIRONOLACTONE [Concomitant]
     Active Substance: SPIRONOLACTONE
  6. COLCHICINE [Concomitant]
     Active Substance: COLCHICINE
  7. ZOFRAN [Concomitant]
     Active Substance: ONDANSETRON HYDROCHLORIDE
  8. FLUOXETINE [Concomitant]
     Active Substance: FLUOXETINE HYDROCHLORIDE
  9. TORSEMIDE [Concomitant]
     Active Substance: TORSEMIDE
  10. BUPROPION [Concomitant]
     Active Substance: BUPROPION
  11. CELLCEPT [Concomitant]
     Active Substance: MYCOPHENOLATE MOFETIL
  12. ALLOPURINOL [Concomitant]
     Active Substance: ALLOPURINOL
  13. SPIRIVA RESPIMAT [Concomitant]
     Active Substance: TIOTROPIUM BROMIDE
  14. ALBUTEROL SULFATE [Concomitant]
     Active Substance: ALBUTEROL SULFATE
  15. WIXELA INHUB [Concomitant]
     Active Substance: FLUTICASONE PROPIONATE\SALMETEROL XINAFOATE
  16. ALBUTEROL [Concomitant]
     Active Substance: ALBUTEROL
  17. TIZANIDINE [Concomitant]
     Active Substance: TIZANIDINE
  18. NARCAN [Concomitant]
     Active Substance: NALOXONE HYDROCHLORIDE
  19. NYSTATIN [Concomitant]
     Active Substance: NYSTATIN
  20. CETIRIZINE [Concomitant]
     Active Substance: CETIRIZINE HYDROCHLORIDE
  21. DOCUSATE [Concomitant]
     Active Substance: DOCUSATE
  22. SOCIUM [Concomitant]
  23. BIOTIN [Concomitant]
     Active Substance: BIOTIN
  24. VITAMIN D3 [Concomitant]
     Active Substance: CHOLECALCIFEROL

REACTIONS (3)
  - Dyspnoea [None]
  - Condition aggravated [None]
  - Pulseless electrical activity [None]

NARRATIVE: CASE EVENT DATE: 20221124
